FAERS Safety Report 24078770 (Version 2)
Quarter: 2024Q3

REPORT INFORMATION
  Report Type: Spontaneous
  Country: US (occurrence: US)
  Receive Date: 20240711
  Receipt Date: 20240712
  Transmission Date: 20241017
  Serious: No
  Sender: ROCHE
  Company Number: US-ROCHE-10000015939

PATIENT
  Age: 51 Year
  Sex: Female
  Weight: 52.16 kg

DRUGS (5)
  1. KADCYLA [Suspect]
     Active Substance: ADO-TRASTUZUMAB EMTANSINE
     Indication: Breast cancer
     Route: 042
     Dates: start: 202405
  2. ZOFRAN [Concomitant]
     Active Substance: ONDANSETRON HYDROCHLORIDE
  3. ALOXI [Concomitant]
     Active Substance: PALONOSETRON HYDROCHLORIDE
  4. PREVIDENT [Concomitant]
     Active Substance: SODIUM FLUORIDE
  5. OASIS TEARS [Concomitant]
     Active Substance: GLYCERIN

REACTIONS (4)
  - Fatigue [Not Recovered/Not Resolved]
  - Migraine [Not Recovered/Not Resolved]
  - Dry mouth [Unknown]
  - Infection [Unknown]

NARRATIVE: CASE EVENT DATE: 20240501
